FAERS Safety Report 17888649 (Version 1)
Quarter: 2020Q2

REPORT INFORMATION
  Report Type: Other
  Country: US (occurrence: US)
  Receive Date: 20200612
  Receipt Date: 20200612
  Transmission Date: 20200714
  Serious: Yes (Hospitalization, Other)
  Sender: FDA-Public Use
  Company Number: US-NUVO PHARMACEUTICALS INC-2085710

PATIENT
  Age: 41 Year
  Sex: Female

DRUGS (3)
  1. AMPHETAMINES [Suspect]
     Active Substance: AMPHETAMINE
     Route: 065
  2. OXYCODONE HYDROCHLORIDE. [Suspect]
     Active Substance: OXYCODONE HYDROCHLORIDE
     Indication: PRODUCT USED FOR UNKNOWN INDICATION
     Route: 065
  3. BENZODIAZEPINES [Suspect]
     Active Substance: BENZODIAZEPINE
     Route: 065

REACTIONS (3)
  - Diastolic dysfunction [Unknown]
  - Acute respiratory distress syndrome [Unknown]
  - Substance abuse [Unknown]
